FAERS Safety Report 10362492 (Version 2)
Quarter: 2014Q3

REPORT INFORMATION
  Report Type: Report from Study
  Country: CA (occurrence: CA)
  Receive Date: 20140805
  Receipt Date: 20140919
  Transmission Date: 20150326
  Serious: Yes (Hospitalization, Other)
  Sender: FDA-Public Use
  Company Number: PHHY2014CA093496

PATIENT
  Age: 55 Year
  Sex: Female

DRUGS (6)
  1. CLOZARIL [Suspect]
     Active Substance: CLOZAPINE
     Dosage: 300 MG, DAILY
     Route: 048
     Dates: start: 20140705, end: 20140723
  2. METFORMIN [Concomitant]
     Active Substance: METFORMIN HYDROCHLORIDE
     Dosage: 500 MG, TID
     Route: 048
  3. NORVASC [Concomitant]
     Active Substance: AMLODIPINE BESYLATE
     Dosage: 2.5 MG, BID
     Route: 048
  4. COLACE [Concomitant]
     Active Substance: DOCUSATE SODIUM
     Dosage: UNK UKN, UNK
  5. CLOZARIL [Suspect]
     Active Substance: CLOZAPINE
     Indication: SCHIZOPHRENIA
     Dosage: UNK
     Route: 048
     Dates: start: 20140620
  6. OLANZAPINE. [Concomitant]
     Active Substance: OLANZAPINE
     Dosage: 10 MG, (HS)
     Route: 048

REACTIONS (10)
  - Hepatitis [Recovered/Resolved]
  - Fatigue [Unknown]
  - Neutrophil count increased [Unknown]
  - Pericarditis [Recovered/Resolved]
  - Alanine aminotransferase increased [Unknown]
  - Hypertrophic cardiomyopathy [Unknown]
  - Exercise tolerance decreased [Unknown]
  - Eosinophilia [Recovered/Resolved]
  - White blood cell count increased [Unknown]
  - Malaise [Unknown]

NARRATIVE: CASE EVENT DATE: 201407
